FAERS Safety Report 7504512-3 (Version None)
Quarter: 2011Q2

REPORT INFORMATION
  Report Type: 
  Country: None (occurrence: None)
  Receive Date: 20110525
  Receipt Date: 20110511
  Transmission Date: 20111010
  Serious: Yes (Hospitalization, Other)
  Sender: FDA-Public Use
  Company Number: PHEH2007US03697

PATIENT
  Sex: Female

DRUGS (82)
  1. AREDIA [Suspect]
     Indication: BREAST CANCER
     Dosage: UNK
     Dates: start: 20050101
  2. SPIRIVA [Concomitant]
  3. LABETALOL [Concomitant]
  4. PROTON PUMP INHIBITORS [Concomitant]
  5. ACETAMINOPHEN [Concomitant]
  6. HYDROCODONE BITARTRATE [Concomitant]
  7. TIOTROPIUM BROMIDE [Concomitant]
  8. TAXOL [Concomitant]
  9. METHADONE HCL [Concomitant]
  10. TAXOTERE [Concomitant]
  11. BACTRIM [Concomitant]
  12. CLINDAMYCIN [Concomitant]
  13. NORCO [Concomitant]
     Indication: PAIN
     Dosage: UNK
     Route: 048
  14. NEURONTIN [Concomitant]
  15. BACLOFEN [Concomitant]
  16. CELEXA [Concomitant]
     Indication: CHRONIC OBSTRUCTIVE PULMONARY DISEASE
     Dosage: UNK
     Route: 048
  17. XANAX [Concomitant]
     Dosage: UNK
     Route: 048
  18. ZITHROMAX [Concomitant]
  19. ZESTRIL [Concomitant]
  20. PRILOSEC [Concomitant]
  21. HERCEPTIN [Concomitant]
  22. EFFEXOR [Concomitant]
  23. DYAZIDE [Concomitant]
  24. PREVACID [Concomitant]
     Dosage: UNK
  25. CHLORPHEDRINE SR [Concomitant]
  26. IBUPROFEN [Concomitant]
  27. POTASSIUM CHLORIDE [Concomitant]
  28. VALIUM [Concomitant]
     Dosage: 5 MG, PRN
     Route: 048
  29. ROBITUSSIN ^ROBINS^ [Concomitant]
  30. OXYMORPHONE [Concomitant]
  31. XOPENEX [Concomitant]
  32. THEOPHYLLINE [Concomitant]
  33. ROXICODONE [Concomitant]
  34. DEXAMETHASONE [Concomitant]
  35. LEVAQUIN [Concomitant]
     Dosage: 500 MG, UNK
  36. DURAGESIC-100 [Concomitant]
  37. DILAUDID [Concomitant]
  38. PERCOCET [Concomitant]
  39. MONOPRIL [Concomitant]
     Indication: HYPERTENSION
  40. OXYGEN THERAPY [Concomitant]
  41. LOTENSIN [Concomitant]
  42. ZOMETA [Suspect]
     Indication: BREAST CANCER
     Dosage: UNK
     Dates: start: 20050101
  43. K-DUR [Concomitant]
  44. ATROVENT [Concomitant]
  45. ALBUTEROL SULFATE AUTOHALER [Concomitant]
  46. PENICILLIN NOS [Concomitant]
  47. ZYRTEC [Concomitant]
  48. ATIVAN [Concomitant]
  49. FLEXERIL [Concomitant]
     Dosage: UNK
  50. REGLAN [Concomitant]
     Dosage: BEFORE MEALS
  51. FEMARA [Concomitant]
  52. DIFLUCAN [Concomitant]
     Dosage: 200 MG, QD
     Route: 048
  53. CLONIDINE [Concomitant]
  54. CHEMOTHERAPEUTICS NOS [Concomitant]
  55. WELLBUTRIN [Concomitant]
  56. PREDNISONE [Concomitant]
  57. CIPRO [Concomitant]
  58. KETEK [Concomitant]
  59. MIRALAX [Concomitant]
  60. BEXTRA [Concomitant]
  61. METHOTREXATE [Concomitant]
  62. CYTOXAN [Concomitant]
  63. ICAR [Concomitant]
     Dosage: UNK
     Route: 048
  64. MOBIC [Concomitant]
  65. KADIAN ^KNOLL^ [Concomitant]
  66. LASIX [Concomitant]
  67. OXYCONTIN [Concomitant]
     Dosage: 40 MG, BID
  68. TORADOL [Concomitant]
     Dosage: 60 MG, ONCE/SINGLE
     Route: 030
  69. SKELAXIN [Concomitant]
  70. VERSAPEN [Concomitant]
  71. LORTAB [Concomitant]
  72. ADRIAMYCIN PFS [Concomitant]
  73. AMITIZA [Concomitant]
     Dosage: 24 MEQ, QD
     Route: 048
  74. NEXIUM [Concomitant]
     Dosage: 40 MG, QD
     Route: 048
  75. COMPAZINE [Concomitant]
  76. COZAAR [Concomitant]
  77. PULMICORT [Concomitant]
  78. MSIR [Concomitant]
  79. ZELNORM [Concomitant]
  80. OMNICEF [Concomitant]
  81. NORMODYNE [Concomitant]
  82. GEMZAR [Concomitant]

REACTIONS (41)
  - CONVULSION [None]
  - BONE PAIN [None]
  - POSTMENOPAUSE [None]
  - HEADACHE [None]
  - NAUSEA [None]
  - METASTASES TO MENINGES [None]
  - CONSTIPATION [None]
  - OSTEOMYELITIS [None]
  - PAIN [None]
  - MUCOSAL INFLAMMATION [None]
  - BONE DISORDER [None]
  - DECREASED INTEREST [None]
  - ANAEMIA [None]
  - LARYNGITIS [None]
  - LUNG NEOPLASM [None]
  - PNEUMONITIS [None]
  - BRONCHITIS [None]
  - CEREBRAL ATROPHY [None]
  - POOR DENTAL CONDITION [None]
  - INJURY [None]
  - CANDIDIASIS [None]
  - COUGH [None]
  - DYSPNOEA [None]
  - RESPIRATORY FAILURE [None]
  - OEDEMA PERIPHERAL [None]
  - TREMOR [None]
  - VOMITING [None]
  - ODYNOPHAGIA [None]
  - BREAST CANCER METASTATIC [None]
  - HYPERTHYROIDISM [None]
  - OSTEONECROSIS OF JAW [None]
  - ACTINOMYCOSIS [None]
  - SINUSITIS [None]
  - JAUNDICE [None]
  - ANXIETY [None]
  - GENERAL PHYSICAL HEALTH DETERIORATION [None]
  - FRACTURE NONUNION [None]
  - MALAISE [None]
  - CHRONIC OBSTRUCTIVE PULMONARY DISEASE [None]
  - PYREXIA [None]
  - WEIGHT DECREASED [None]
